FAERS Safety Report 22086318 (Version 2)
Quarter: 2023Q1

REPORT INFORMATION
  Report Type: Spontaneous
  Country: JP (occurrence: JP)
  Receive Date: 20230310
  Receipt Date: 20230321
  Transmission Date: 20230417
  Serious: Yes (Other)
  Sender: FDA-Public Use
  Company Number: JP-teijin-202300500_FET_P_1

PATIENT
  Age: 75 Year
  Sex: Male

DRUGS (6)
  1. FEBUXOSTAT [Suspect]
     Active Substance: FEBUXOSTAT
     Indication: Product used for unknown indication
     Dosage: 10 MILLIGRAM, QD
     Route: 048
  2. FEBUXOSTAT [Suspect]
     Active Substance: FEBUXOSTAT
     Dosage: 20 MILLIGRAM, QD
     Route: 048
     Dates: start: 20221225
  3. FEBUXOSTAT [Suspect]
     Active Substance: FEBUXOSTAT
     Dosage: 10 MILLIGRAM, QD
     Route: 048
  4. AZILSARTAN KAMEDOXOMIL [Concomitant]
     Active Substance: AZILSARTAN KAMEDOXOMIL
     Dosage: 10 MILLIGRAM, QD
     Route: 048
  5. CARVEDILOL [Concomitant]
     Active Substance: CARVEDILOL
     Dosage: 2.5 MILLIGRAM, BID
     Route: 048
     Dates: start: 20230118, end: 20230202
  6. CARVEDILOL [Concomitant]
     Active Substance: CARVEDILOL
     Dosage: UNK UNK, QD
     Route: 048
     Dates: start: 20230202

REACTIONS (2)
  - Arrhythmia [Recovered/Resolved]
  - Ventricular extrasystoles [Recovering/Resolving]

NARRATIVE: CASE EVENT DATE: 20230127
